FAERS Safety Report 5963456-9 (Version None)
Quarter: 2008Q4

REPORT INFORMATION
  Report Type: 
  Country: None (occurrence: None)
  Receive Date: 20081121
  Receipt Date: 20081121
  Transmission Date: 20090506
  Serious: Yes (Life-Threatening, Hospitalization, Other)
  Sender: FDA-Public Use
  Company Number: None

PATIENT
  Age: 44 Year
  Sex: Male
  Weight: 86.1834 kg

DRUGS (4)
  1. EFFEXOR [Suspect]
     Indication: ANXIETY
     Dosage: 375 MGS ONCE DAILY W-FOOD PO
     Route: 048
     Dates: start: 20080920, end: 20081108
  2. EFFEXOR [Suspect]
     Indication: DEPRESSION
     Dosage: 375 MGS ONCE DAILY W-FOOD PO
     Route: 048
     Dates: start: 20080920, end: 20081108
  3. EFFEXOR [Suspect]
     Indication: PANIC DISORDER
     Dosage: 375 MGS ONCE DAILY W-FOOD PO
     Route: 048
     Dates: start: 20080920, end: 20081108
  4. EFFEXOR [Suspect]
     Indication: SUICIDAL IDEATION
     Dosage: 375 MGS ONCE DAILY W-FOOD PO
     Route: 048
     Dates: start: 20080920, end: 20081108

REACTIONS (7)
  - ANXIETY DISORDER [None]
  - CONDITION AGGRAVATED [None]
  - DEPRESSION [None]
  - DRUG PRESCRIBING ERROR [None]
  - PANIC DISORDER [None]
  - RASH [None]
  - SUICIDAL IDEATION [None]
